FAERS Safety Report 9017413 (Version 3)
Quarter: 2014Q3

REPORT INFORMATION
  Report Type: Spontaneous
  Country: US (occurrence: US)
  Receive Date: 20130117
  Receipt Date: 20140707
  Transmission Date: 20150326
  Serious: Yes (Hospitalization, Other)
  Sender: FDA-Public Use
  Company Number: US-009507513-2011SP017555

PATIENT
  Sex: Female
  Weight: 52.16 kg

DRUGS (7)
  1. NUVARING [Suspect]
     Active Substance: ETHINYL ESTRADIOL\ETONOGESTREL
     Indication: DYSMENORRHOEA
  2. NUVARING [Suspect]
     Active Substance: ETHINYL ESTRADIOL\ETONOGESTREL
     Indication: OVARIAN CYST
  3. NUVARING [Suspect]
     Active Substance: ETHINYL ESTRADIOL\ETONOGESTREL
     Indication: MENSTRUAL CYCLE MANAGEMENT
  4. LORAZEPAM. [Concomitant]
     Active Substance: LORAZEPAM
     Indication: MENTAL DISORDER
     Dosage: 0.5 MG, QD
  5. COUGH, COLD, AND FLU THERAPIES (UNSPECIFIED) [Concomitant]
     Indication: ATTENTION DEFICIT/HYPERACTIVITY DISORDER
     Dosage: 50 MG, QD
  6. NUVARING [Suspect]
     Active Substance: ETHINYL ESTRADIOL\ETONOGESTREL
     Indication: CONTRACEPTION
     Dosage: UNK UNK, QM
     Route: 067
     Dates: start: 200705, end: 20090419
  7. SERTRALINE HYDROCHLORIDE. [Concomitant]
     Active Substance: SERTRALINE HYDROCHLORIDE
     Indication: MENTAL DISORDER
     Dosage: 100 MG, QD

REACTIONS (18)
  - Cervix carcinoma [Unknown]
  - Off label use [Unknown]
  - Cervical dysplasia [Unknown]
  - Nasopharyngitis [Unknown]
  - Vulvovaginal discomfort [Unknown]
  - Hallucination [Unknown]
  - Vulvovaginal candidiasis [Unknown]
  - Substance abuse [Unknown]
  - Kidney infection [Not Recovered/Not Resolved]
  - Cervix operation [Unknown]
  - Urinary tract infection [Not Recovered/Not Resolved]
  - Hypersensitivity [Unknown]
  - Pulmonary embolism [Recovered/Resolved]
  - Inappropriate schedule of drug administration [Unknown]
  - Hypercoagulation [Unknown]
  - Dysfunctional uterine bleeding [Unknown]
  - Insomnia [Unknown]
  - Maternal exposure before pregnancy [Unknown]

NARRATIVE: CASE EVENT DATE: 200801
